FAERS Safety Report 20878206 (Version 1)
Quarter: 2022Q2

REPORT INFORMATION
  Report Type: Spontaneous
  Country: FR (occurrence: FR)
  Receive Date: 20220526
  Receipt Date: 20220526
  Transmission Date: 20220721
  Serious: Yes (Life-Threatening, Other)
  Sender: FDA-Public Use
  Company Number: None

PATIENT
  Age: 63 Year
  Sex: Male

DRUGS (6)
  1. APREPITANT [Suspect]
     Active Substance: APREPITANT
     Indication: Chemotherapy side effect prophylaxis
     Dosage: UNK, POSOLOGIE NON PR?CIS?E
     Route: 048
     Dates: start: 20211115, end: 20211115
  2. PREDNISONE [Suspect]
     Active Substance: PREDNISONE
     Indication: Chemotherapy side effect prophylaxis
     Dosage: UNK, POSOLOGIE NON PR?CIS?E
     Route: 048
     Dates: start: 20211115, end: 20211115
  3. FLUOROURACIL [Suspect]
     Active Substance: FLUOROURACIL
     Indication: Rectosigmoid cancer
     Dosage: UNK, POSOLOGIE NON PR?CIS?E
     Route: 041
     Dates: start: 20211115, end: 20211115
  4. OXALIPLATIN [Suspect]
     Active Substance: OXALIPLATIN
     Indication: Rectosigmoid cancer
     Dosage: UNK, POSOLOGIE NON PR?CIS?E
     Route: 041
     Dates: start: 20211115, end: 20211115
  5. GRANISETRON [Suspect]
     Active Substance: GRANISETRON
     Indication: Chemotherapy side effect prophylaxis
     Dosage: UNK, POSOLOGIE NON PR?CIS?E
     Route: 048
     Dates: start: 20211115, end: 20211115
  6. VOLTARENE (DICLOFENAC SODIUM) [Suspect]
     Active Substance: DICLOFENAC SODIUM
     Indication: Chemotherapy side effect prophylaxis
     Dosage: UNK, POSOLOGIE NON PR?CIS?E
     Route: 048
     Dates: start: 20211115, end: 20211115

REACTIONS (1)
  - Anaphylactoid reaction [Recovered/Resolved]

NARRATIVE: CASE EVENT DATE: 20211115
